FAERS Safety Report 5286883-4 (Version None)
Quarter: 2007Q1

REPORT INFORMATION
  Report Type: 
  Country: None (occurrence: None)
  Receive Date: 20070329
  Receipt Date: 20070315
  Transmission Date: 20070707
  Serious: Yes (Hospitalization, Other)
  Sender: FDA-Public Use
  Company Number: 2007RR-06423

PATIENT
  Age: 14 Year
  Sex: Female

DRUGS (2)
  1. CIPROFLOXACIN (CIPROFLOXACIN) UNIKNOWN [Suspect]
     Indication: PYELONEPHRITIS
     Dosage: 500 MG, BID; ORAL
     Route: 048
  2. DOXYCYCLINE [Concomitant]

REACTIONS (7)
  - BORRELIA INFECTION [None]
  - DEHYDRATION [None]
  - DISSEMINATED INTRAVASCULAR COAGULATION [None]
  - HYPOTENSION [None]
  - JARISCH-HERXHEIMER REACTION [None]
  - SEPSIS [None]
  - TACHYCARDIA [None]
